FAERS Safety Report 15574506 (Version 2)
Quarter: 2018Q4

REPORT INFORMATION
  Report Type: Spontaneous
  Country: IR (occurrence: IR)
  Receive Date: 20181101
  Receipt Date: 20181105
  Transmission Date: 20190205
  Serious: Yes (Hospitalization, Other)
  Sender: FDA-Public Use
  Company Number: IR-SA-2018SA298953

PATIENT
  Age: 9 Year
  Sex: Male
  Weight: 22 kg

DRUGS (1)
  1. ALDURAZYME [Suspect]
     Active Substance: LARONIDASE
     Indication: MUCOPOLYSACCHARIDOSIS I
     Dosage: 0.58 MG/KG, QW SLOW INFUSION
     Route: 041
     Dates: end: 20181020

REACTIONS (8)
  - Coma [Recovered/Resolved]
  - Swelling face [Recovered/Resolved]
  - Ear haemorrhage [Recovered/Resolved]
  - Fatigue [Recovered/Resolved]
  - Respiratory distress [Recovered/Resolved]
  - Ataxia [Recovered/Resolved]
  - Epistaxis [Recovered/Resolved]
  - Periorbital swelling [Recovered/Resolved]

NARRATIVE: CASE EVENT DATE: 20181020
